FAERS Safety Report 7175254-1 (Version None)
Quarter: 2010Q4

REPORT INFORMATION
  Report Type: 
  Country: None (occurrence: None)
  Receive Date: 20101220
  Receipt Date: 20100302
  Transmission Date: 20110411
  Serious: No
  Sender: FDA-Public Use
  Company Number: US-AMGEN-TCS396902

PATIENT

DRUGS (2)
  1. ENBREL [Suspect]
     Indication: RHEUMATOID ARTHRITIS
     Dosage: 50 MG, QWK
     Route: 058
     Dates: start: 20090905
  2. UNKNOWN [Concomitant]

REACTIONS (7)
  - ASTHENIA [None]
  - BACTERIAL INFECTION [None]
  - BRONCHITIS [None]
  - EAR INFECTION [None]
  - FATIGUE [None]
  - RHEUMATOID ARTHRITIS [None]
  - SINUSITIS [None]
